FAERS Safety Report 6579236-X (Version None)
Quarter: 2010Q1

REPORT INFORMATION
  Report Type: 
  Country: None (occurrence: None)
  Receive Date: 20100212
  Receipt Date: 20100201
  Transmission Date: 20100710
  Serious: Yes (Hospitalization)
  Sender: FDA-Public Use
  Company Number: FR-PFIZER INC-2010015653

PATIENT
  Age: 86 Year
  Sex: Male

DRUGS (9)
  1. ATARAX [Suspect]
     Dosage: 25 MG, 2X/DAY
     Route: 048
     Dates: start: 20090707
  2. SIMVASTATIN [Suspect]
     Dosage: 20 MG, 1X/DAY
     Route: 048
     Dates: end: 20091202
  3. LASILIX [Suspect]
     Indication: HYPERTENSION
     Dosage: 125 MG, 1X/DAY
     Route: 048
  4. SOTALOL [Suspect]
     Dosage: 80 MG, 2X/DAY
     Route: 048
     Dates: end: 20091204
  5. TRIATEC [Suspect]
     Dosage: 10 MG, 1X/DAY
     Route: 048
     Dates: start: 20090909
  6. ALLOPURINOL [Suspect]
     Dosage: 100 MG, 1X/DAY
     Route: 048
     Dates: start: 20090609, end: 20091203
  7. KARDEGIC [Suspect]
     Dosage: 75 MG, 1X/DAY
     Route: 048
  8. OMEPRAZOLE [Suspect]
     Dosage: 20 MG, 1X/DAY
     Route: 048
     Dates: end: 20091202
  9. DAFALGAN [Suspect]
     Dosage: 3 G, 1X/DAY
     Route: 048
     Dates: start: 20090609

REACTIONS (3)
  - LICHENOID KERATOSIS [None]
  - LYMPHADENOPATHY [None]
  - PRURITUS [None]
